FAERS Safety Report 12710389 (Version 1)
Quarter: 2016Q3

REPORT INFORMATION
  Report Type: Spontaneous
  Country: FR (occurrence: FR)
  Receive Date: 20160902
  Receipt Date: 20160902
  Transmission Date: 20161109
  Serious: Yes (Hospitalization, Congenital Anomaly, Other)
  Sender: FDA-Public Use
  Company Number: FR-BRISTOL-MYERS SQUIBB COMPANY-13530860

PATIENT
  Age: 7 Month
  Sex: Male
  Weight: 3.9 kg

DRUGS (2)
  1. VIDEX [Suspect]
     Active Substance: DIDANOSINE
     Indication: HIV INFECTION
     Dosage: 7 MG, QD
     Route: 048
  2. RETROVIR [Suspect]
     Active Substance: ZIDOVUDINE
     Indication: HIV INFECTION
     Dosage: 8 MG/KG, UNK
     Route: 048

REACTIONS (4)
  - Blood lactic acid increased [Recovered/Resolved]
  - Foetal exposure during pregnancy [Unknown]
  - Macrocephaly [Recovered/Resolved]
  - Neutropenia [Recovered/Resolved]
